FAERS Safety Report 15882458 (Version 1)
Quarter: 2019Q1

REPORT INFORMATION
  Report Type: Spontaneous
  Country: FR (occurrence: FR)
  Receive Date: 20190129
  Receipt Date: 20190129
  Transmission Date: 20190417
  Serious: Yes (Hospitalization)
  Sender: FDA-Public Use
  Company Number: FR-SUN PHARMACEUTICAL INDUSTRIES LTD-2019RR-197318

PATIENT
  Age: 19 Year
  Sex: Male

DRUGS (2)
  1. TRAMADOL. [Suspect]
     Active Substance: TRAMADOL
     Indication: INTENTIONAL OVERDOSE
     Dosage: 3000 MG, IN TOTAL
     Route: 048
     Dates: start: 20181009, end: 20181009
  2. PARACETAMOL [Suspect]
     Active Substance: ACETAMINOPHEN
     Indication: INTENTIONAL OVERDOSE
     Dosage: 32 G, IN TOTAL
     Route: 048
     Dates: start: 20181009, end: 20181009

REACTIONS (3)
  - Hypertonia [Recovered/Resolved]
  - Altered state of consciousness [Recovered/Resolved]
  - Poisoning deliberate [Recovered/Resolved]

NARRATIVE: CASE EVENT DATE: 20181109
